FAERS Safety Report 4715316-9 (Version None)
Quarter: 2005Q3

REPORT INFORMATION
  Report Type: 
  Country: None (occurrence: None)
  Receive Date: 20050715
  Receipt Date: 20050707
  Transmission Date: 20060218
  Serious: Yes (Hospitalization)
  Sender: FDA-Public Use
  Company Number: FR-ABBOTT-05P-056-0305095-00

PATIENT
  Age: 14 Year
  Sex: Female

DRUGS (8)
  1. DEPAKENE [Suspect]
     Indication: EPILEPSY
     Route: 048
     Dates: start: 20000101
  2. RIFAMPICIN [Suspect]
     Indication: DRUG USE FOR UNKNOWN INDICATION
     Route: 048
     Dates: start: 20050531
  3. OFLOXACIN [Interacting]
     Indication: DRUG USE FOR UNKNOWN INDICATION
     Route: 048
     Dates: start: 20050531
  4. BACLOFEN [Interacting]
     Indication: QUADRIPARESIS
     Dosage: 125 MG DAILY THROUGH IMPLANTABLE INTRATHECAL PUMP
     Route: 037
     Dates: start: 20020903
  5. TRIHEXYPHENIDYL HCL [Interacting]
     Indication: DYSTONIA
     Dates: start: 20050607, end: 20050607
  6. MORPHINE [Concomitant]
     Indication: DRUG USE FOR UNKNOWN INDICATION
     Route: 065
     Dates: start: 20050401, end: 20050601
  7. MORPHINE [Concomitant]
     Route: 065
     Dates: start: 20050602, end: 20050605
  8. MORPHINE [Concomitant]
     Route: 065
     Dates: start: 20050606

REACTIONS (4)
  - CONVULSION [None]
  - DRUG EFFECT DECREASED [None]
  - DRUG INTERACTION [None]
  - DRUG LEVEL DECREASED [None]
